FAERS Safety Report 23376033 (Version 3)
Quarter: 2024Q1

REPORT INFORMATION
  Report Type: Spontaneous
  Country: US (occurrence: US)
  Receive Date: 20240108
  Receipt Date: 20240123
  Transmission Date: 20240409
  Serious: No
  Sender: FDA-Public Use
  Company Number: US-SANOFI-01617070

PATIENT
  Sex: Female

DRUGS (2)
  1. DULCOLAX CHEWY BITES ASSORTED FRUITS [Suspect]
     Active Substance: MAGNESIUM HYDROXIDE
     Indication: Product used for unknown indication
     Dosage: DOSE DESCRIPTION : 4 DF (2 CHEWS THEN ANOTHER 2)
  2. DULCOLAX CHEWY BITES ASSORTED FRUITS [Suspect]
     Active Substance: MAGNESIUM HYDROXIDE
     Dosage: DOSE DESCRIPTION : 4 DF (2 CHEWS THEN ANOTHER 2)
     Route: 065

REACTIONS (2)
  - Drug ineffective [Unknown]
  - No adverse event [Unknown]
